FAERS Safety Report 22088121 (Version 1)
Quarter: 2023Q1

REPORT INFORMATION
  Report Type: Report from Study
  Country: US (occurrence: None)
  Receive Date: 20230313
  Receipt Date: 20230313
  Transmission Date: 20230418
  Serious: Yes (Death)
  Sender: FDA-Public Use
  Company Number: US-ROCHE-3305276

PATIENT

DRUGS (1)
  1. VENETOCLAX [Suspect]
     Active Substance: VENETOCLAX
     Indication: Acute myeloid leukaemia
     Dosage: COMPLETED CYCLE 2, LAST DOSE ON 24/FEB/2021, STUDY OFF ON 21/JUN/2021
     Route: 065
     Dates: start: 20211225

REACTIONS (1)
  - Death [Fatal]
